FAERS Safety Report 4948413-3 (Version None)
Quarter: 2006Q1

REPORT INFORMATION
  Report Type: 
  Country: None (occurrence: None)
  Receive Date: 20060313
  Receipt Date: 20060302
  Transmission Date: 20060701
  Serious: Yes (Hospitalization)
  Sender: FDA-Public Use
  Company Number: GXKR2006GR01266

PATIENT
  Age: 38 Year
  Sex: Female

DRUGS (2)
  1. RIBAVIRIN [Suspect]
     Indication: HEPATITIS C
  2. INTERFERON ALPHA (NGX) (INTERFERON ALPHA) [Suspect]
     Indication: HEPATITIS C

REACTIONS (2)
  - ALANINE AMINOTRANSFERASE INCREASED [None]
  - VOGT-KOYANAGI-HARADA SYNDROME [None]
